FAERS Safety Report 11300725 (Version 1)
Quarter: 2015Q3

REPORT INFORMATION
  Report Type: Spontaneous
  Country: US (occurrence: None)
  Receive Date: 20150723
  Receipt Date: 20150723
  Transmission Date: 20151125
  Serious: Yes (Life-Threatening)
  Sender: FDA-Public Use
  Company Number: None

PATIENT
  Age: 1 Month
  Sex: Male
  Weight: 91 kg

DRUGS (1)
  1. GADOLINIUM [Suspect]
     Active Substance: GADOLINIUM
     Route: 042

REACTIONS (4)
  - Sneezing [None]
  - Malaise [None]
  - Throat irritation [None]
  - Cough [None]

NARRATIVE: CASE EVENT DATE: 20150713
